FAERS Safety Report 7421275-0 (Version None)
Quarter: 2011Q2

REPORT INFORMATION
  Report Type: 
  Country: None (occurrence: None)
  Receive Date: 20110418
  Receipt Date: 20110411
  Transmission Date: 20111010
  Serious: Yes (Hospitalization)
  Sender: FDA-Public Use
  Company Number: US-MERCK-1104USA01560

PATIENT
  Age: 89 Year
  Sex: Male

DRUGS (5)
  1. INSULIN [Concomitant]
     Route: 065
  2. METFORMIN [Concomitant]
     Route: 065
  3. LIPITOR [Concomitant]
     Route: 065
  4. JANUVIA [Suspect]
     Route: 048
  5. GLIMEPIRIDE [Concomitant]
     Route: 065

REACTIONS (3)
  - CEREBROVASCULAR ACCIDENT [None]
  - LIVER FUNCTION TEST ABNORMAL [None]
  - THROMBOSIS [None]
